FAERS Safety Report 7118833-X (Version None)
Quarter: 2010Q4

REPORT INFORMATION
  Report Type: 
  Country: None (occurrence: None)
  Receive Date: 20101123
  Receipt Date: 20100810
  Transmission Date: 20110411
  Serious: No
  Sender: FDA-Public Use
  Company Number: US-KINGPHARMUSA00001-K201001031

PATIENT
  Age: 22 Year
  Sex: Female

DRUGS (1)
  1. FLECTOR [Suspect]
     Indication: MUSCLE STRAIN
     Dosage: UNK PATCH, UNK
     Route: 061

REACTIONS (2)
  - FLUSHING [None]
  - HOT FLUSH [None]
